FAERS Safety Report 4880454-7 (Version None)
Quarter: 2005Q4

REPORT INFORMATION
  Report Type: 
  Country: None (occurrence: None)
  Receive Date: 20051223
  Receipt Date: 20051121
  Transmission Date: 20060501
  Serious: No
  Sender: FDA-Public Use
  Company Number: 05P-163-0318753-00

PATIENT
  Age: 50 Year
  Sex: Female
  Weight: 63.5036 kg

DRUGS (8)
  1. HUMIRA [Suspect]
     Indication: RHEUMATOID ARTHRITIS
     Dosage: 40 MG, 1 IN 2 WK, SUBCUTANEOUS
     Route: 058
     Dates: start: 20020101
  2. LANSOPRAZOLE [Concomitant]
  3. PREDNISONE [Concomitant]
  4. LEXAPRO [Concomitant]
  5. ACETAMINOPHEN W/ CODEINE [Concomitant]
  6. ZOLPIDEM TARTRATE [Concomitant]
  7. ALPRAZOLAM [Concomitant]
  8. FOLIC ACID [Concomitant]

REACTIONS (2)
  - DYSGEUSIA [None]
  - PALPITATIONS [None]
